FAERS Safety Report 9844799 (Version 1)
Quarter: 2014Q1

REPORT INFORMATION
  Report Type: Spontaneous
  Country: US (occurrence: None)
  Receive Date: 20140122
  Receipt Date: 20140122
  Transmission Date: 20141002
  Serious: No
  Sender: FDA-Public Use
  Company Number: B0960466A

PATIENT
  Age: 53 Year
  Sex: Female

DRUGS (5)
  1. LAMOTRIGINE (LAMOTRIGINE) [Suspect]
     Route: 048
  2. COCAINE (COCAINE) [Suspect]
     Route: 048
  3. ETHANOL (ALCOHOL) [Suspect]
     Route: 048
  4. CITALOPRAM (CITALOPRAM) [Suspect]
     Route: 048
  5. TOPIRAMATE (TOPIRAMATE) [Suspect]
     Route: 048

REACTIONS (1)
  - Drug abuse [None]
